FAERS Safety Report 11782776 (Version 3)
Quarter: 2017Q4

REPORT INFORMATION
  Report Type: Spontaneous
  Country: US (occurrence: US)
  Receive Date: 20151127
  Receipt Date: 20171027
  Transmission Date: 20180320
  Serious: No
  Sender: FDA-Public Use
  Company Number: US-PFIZER INC-2014132463

PATIENT
  Age: 4 Year
  Sex: Female

DRUGS (4)
  1. SYNTHROID [Concomitant]
     Active Substance: LEVOTHYROXINE SODIUM
     Indication: THYROID DISORDER
     Dosage: UNK
  2. HYDROCORTISONE. [Concomitant]
     Active Substance: HYDROCORTISONE
     Indication: THYROID DISORDER
     Dosage: UNK
  3. GENOTROPIN [Suspect]
     Active Substance: SOMATROPIN
     Indication: HYPERTHYROIDISM
     Dosage: 0.6 MG, 1X/DAY
     Dates: start: 2008
  4. GENOTROPIN [Suspect]
     Active Substance: SOMATROPIN
     Indication: PITUITARY ENLARGEMENT
     Dosage: 0.7 UNIT UNSPECIFIED DAILY

REACTIONS (3)
  - Device issue [Unknown]
  - Drug dose omission [Unknown]
  - Anger [Unknown]

NARRATIVE: CASE EVENT DATE: 2012
